FAERS Safety Report 7404072-1 (Version None)
Quarter: 2011Q2

REPORT INFORMATION
  Report Type: 
  Country: None (occurrence: None)
  Receive Date: 20110408
  Receipt Date: 20110404
  Transmission Date: 20111010
  Serious: Yes (Life-Threatening, Hospitalization)
  Sender: FDA-Public Use
  Company Number: ES-ASTRAZENECA-2011SE18846

PATIENT
  Age: 20 Year
  Sex: Male

DRUGS (6)
  1. SEROQUEL [Interacting]
     Dosage: 100 MG, 40 TABLETS
     Route: 048
  2. OMEPRAZOLE [Concomitant]
     Route: 048
     Dates: start: 20100301
  3. SEROQUEL [Suspect]
     Indication: PERSONALITY DISORDER
     Route: 048
     Dates: start: 20100301, end: 20100331
  4. SEROQUEL [Interacting]
     Dosage: 300 MG, 60 TABLETS
     Route: 048
  5. SERTRALINE HYDROCHLORIDE [Interacting]
     Indication: PERSONALITY DISORDER
     Route: 048
     Dates: start: 20100202, end: 20100331
  6. DIAZEPAM [Interacting]
     Indication: PERSONALITY DISORDER
     Route: 048

REACTIONS (4)
  - INTENTIONAL OVERDOSE [None]
  - DRUG INTERACTION [None]
  - BUNDLE BRANCH BLOCK [None]
  - SUICIDE ATTEMPT [None]
